FAERS Safety Report 10332790 (Version 1)
Quarter: 2014Q3

REPORT INFORMATION
  Report Type: Spontaneous
  Country: US (occurrence: US)
  Receive Date: 20140722
  Receipt Date: 20140722
  Transmission Date: 20150326
  Serious: Yes (Death, Hospitalization)
  Sender: FDA-Public Use
  Company Number: US-PFIZER INC-2014202723

PATIENT
  Age: 90 Year
  Sex: Female
  Weight: 61.22 kg

DRUGS (2)
  1. REVATIO [Suspect]
     Active Substance: SILDENAFIL CITRATE
     Indication: PULMONARY ARTERIAL HYPERTENSION
     Dosage: 20 MG, 3X/DAY
     Dates: end: 201407
  2. AMIODARONE [Concomitant]
     Active Substance: AMIODARONE
     Indication: CARDIAC DISORDER
     Dosage: UNK

REACTIONS (4)
  - Urinary tract infection [Unknown]
  - Chest pain [Unknown]
  - Atrial fibrillation [Unknown]
  - Cardiac failure congestive [Fatal]
